FAERS Safety Report 5149920-3 (Version None)
Quarter: 2006Q4

REPORT INFORMATION
  Report Type: 
  Country: None (occurrence: None)
  Receive Date: 20061113
  Receipt Date: 20061110
  Transmission Date: 20070319
  Serious: Yes (Other)
  Sender: FDA-Public Use
  Company Number: US-ROXANE LABORATORIES, INC-2006-DE-05961GD

PATIENT
  Sex: Male

DRUGS (10)
  1. SERTRALINE [Suspect]
     Indication: DEPRESSIVE SYMPTOM
  2. SERTRALINE [Suspect]
  3. SERTRALINE [Suspect]
  4. DIVALPROEX [Suspect]
     Indication: MANIA
  5. DIVALPROEX [Suspect]
  6. BUPROPION HCL [Suspect]
     Indication: DEPRESSIVE SYMPTOM
  7. BUPROPION HCL [Suspect]
     Indication: DISTURBANCE IN ATTENTION
  8. LITHIUM CARBONATE [Suspect]
     Indication: MANIA
  9. LITHIUM CARBONATE [Suspect]
  10. METHYLPHENIDATE HCL [Suspect]
     Indication: DISTRACTIBILITY
     Dosage: DAILY DOSES OF 5 MG AND 10 MG, LATER CHANGED TO 18 MG - 76 MG/DAY OF THE SUSTAINED-RELEASE FORMULATI

REACTIONS (5)
  - DEPRESSIVE SYMPTOM [None]
  - DISTURBANCE IN ATTENTION [None]
  - DRUG INEFFECTIVE [None]
  - MANIA [None]
  - PANCREATITIS ACUTE [None]
